FAERS Safety Report 7924623-8 (Version None)
Quarter: 2011Q4

REPORT INFORMATION
  Report Type: 
  Country: None (occurrence: None)
  Receive Date: 20111117
  Receipt Date: 20110324
  Transmission Date: 20120403
  Serious: No
  Sender: FDA-Public Use
  Company Number: US-AMGEN-USASP2011016074

PATIENT
  Age: 53 Year
  Sex: Female

DRUGS (2)
  1. ENBREL [Suspect]
     Indication: RHEUMATOID ARTHRITIS
     Dosage: 50 MG, QWK
     Dates: start: 20091104, end: 20110121
  2. METHOTREXATE [Concomitant]
     Dosage: UNK

REACTIONS (8)
  - DRUG EFFECT DECREASED [None]
  - PAIN IN EXTREMITY [None]
  - JOINT SWELLING [None]
  - BURNING SENSATION [None]
  - ARTHRALGIA [None]
  - CHONDROPATHY [None]
  - OEDEMA PERIPHERAL [None]
  - RHEUMATOID ARTHRITIS [None]
